FAERS Safety Report 10239341 (Version 1)
Quarter: 2014Q2

REPORT INFORMATION
  Report Type: Spontaneous
  Country: CN (occurrence: CN)
  Receive Date: 20140616
  Receipt Date: 20140616
  Transmission Date: 20141212
  Serious: Yes (Other)
  Sender: FDA-Public Use
  Company Number: CN-PFIZER INC-2014161802

PATIENT
  Age: 38 Year
  Sex: Female
  Weight: 62.4 kg

DRUGS (3)
  1. PHARMORUBICIN [Suspect]
     Indication: BREAST CANCER
     Dosage: 120 MG, 1X/DAY
     Route: 041
     Dates: start: 20131110, end: 20131110
  2. CYCLOPHOSPHAMIDE [Suspect]
     Indication: BREAST CANCER
     Dosage: 1 G, 1X/DAY
     Route: 041
     Dates: start: 20131110, end: 20131110
  3. AMIFOSTINE [Suspect]
     Indication: BREAST CANCER
     Dosage: 0.8 G, 1X/DAY
     Route: 041
     Dates: start: 20131110, end: 20131110

REACTIONS (2)
  - Hypoaesthesia [Recovering/Resolving]
  - Blood calcium decreased [Unknown]
